FAERS Safety Report 20873876 (Version 3)
Quarter: 2022Q3

REPORT INFORMATION
  Report Type: Spontaneous
  Country: US (occurrence: US)
  Receive Date: 20220525
  Receipt Date: 20220726
  Transmission Date: 20221027
  Serious: Yes (Life-Threatening, Hospitalization, Other)
  Sender: FDA-Public Use
  Company Number: US-SEPTODONT-2022006882

PATIENT
  Age: 79 Year
  Sex: Male
  Weight: 68.5 kg

DRUGS (8)
  1. ARTICADENT [Suspect]
     Active Substance: ARTICAINE HYDROCHLORIDE\EPINEPHRINE BITARTRATE
     Indication: Dental local anaesthesia
     Dosage: HALF A CARPULE
     Route: 004
  2. LIDOCAINE [Suspect]
     Active Substance: LIDOCAINE
     Indication: Dental local anaesthesia
     Dosage: 2 CARPULES (1.7 ML EACH)
     Route: 004
     Dates: start: 20220509, end: 20220509
  3. IBUPROFEN [Concomitant]
     Active Substance: IBUPROFEN
     Indication: Pain
     Dosage: 800 MG EVERY 6 HOURS
  4. CARVEDILOL [Concomitant]
     Active Substance: CARVEDILOL
     Indication: Product used for unknown indication
     Dosage: 1 TABLET ORALLY TWICE A DAY
     Route: 048
  5. LISINOPRIL [Concomitant]
     Active Substance: LISINOPRIL
     Indication: Product used for unknown indication
     Dosage: LISINOPRIL/HCTZ 20/12.5 MG 1 TABLET ORALLY ONCE A DAY
     Route: 048
  6. ATORVASTATIN [Concomitant]
     Active Substance: ATORVASTATIN
     Indication: Product used for unknown indication
     Dosage: 1 TABLET ORALLY AT BEDTIME
     Route: 048
  7. CLOPIDOGREL [Concomitant]
     Active Substance: CLOPIDOGREL BISULFATE
     Indication: Product used for unknown indication
     Dosage: PLAVIX, 1 TABLET ORALLY ONCE A DAY
     Route: 048
  8. ASPIRIN [Concomitant]
     Active Substance: ASPIRIN
     Indication: Product used for unknown indication
     Dosage: 1 TABLET ORALLY EVERY OTHER DAY
     Route: 048

REACTIONS (7)
  - Pulmonary oedema [Recovered/Resolved]
  - Anaphylactic reaction [Recovered/Resolved]
  - Local anaesthetic systemic toxicity [Recovered/Resolved]
  - Renal impairment [Recovered/Resolved]
  - Dyspnoea [Recovered/Resolved]
  - Oxygen saturation abnormal [Recovered/Resolved]
  - Mental status changes [Recovered/Resolved]

NARRATIVE: CASE EVENT DATE: 20220509
